FAERS Safety Report 25231476 (Version 1)
Quarter: 2025Q2

REPORT INFORMATION
  Report Type: Spontaneous
  Country: FR (occurrence: FR)
  Receive Date: 20250423
  Receipt Date: 20250423
  Transmission Date: 20250717
  Serious: Yes (Hospitalization)
  Sender: TEVA
  Company Number: None

PATIENT
  Age: 73 Year
  Sex: Female
  Weight: 85 kg

DRUGS (1)
  1. KETOPROFEN [Suspect]
     Active Substance: KETOPROFEN
     Indication: Pain
     Route: 048
     Dates: start: 20250321

REACTIONS (1)
  - Leukopenia [Not Recovered/Not Resolved]

NARRATIVE: CASE EVENT DATE: 20250325
